FAERS Safety Report 5135072-2 (Version None)
Quarter: 2006Q4

REPORT INFORMATION
  Report Type: 
  Country: None (occurrence: None)
  Receive Date: 20060831
  Receipt Date: 20051111
  Transmission Date: 20070319
  Serious: Yes (Other)
  Sender: FDA-Public Use
  Company Number: 2005-US-01268

PATIENT
  Age: 16 Year
  Sex: Female

DRUGS (1)
  1. BACLOFEN TABLETS USP, 10MG (BACLOFEN) [Suspect]
     Indication: MUSCLE SPASMS
     Dosage: 10 MG )3/8 TABLET) PO QID
     Route: 048
     Dates: start: 20010101

REACTIONS (2)
  - FLATULENCE [None]
  - GRAND MAL CONVULSION [None]
